FAERS Safety Report 4811951-8 (Version None)
Quarter: 2005Q4

REPORT INFORMATION
  Report Type: 
  Country: None (occurrence: None)
  Receive Date: 20051027
  Receipt Date: 20051027
  Transmission Date: 20060501
  Serious: Yes (Hospitalization)
  Sender: FDA-Public Use
  Company Number: None

PATIENT
  Age: 78 Year
  Sex: Male
  Weight: 113.8529 kg

DRUGS (1)
  1. SIMVASTATIN [Suspect]
     Indication: HYPERLIPIDAEMIA
     Dosage: 5MG   QD   PO
     Route: 048
     Dates: start: 20050627, end: 20050808

REACTIONS (3)
  - ABDOMINAL PAIN [None]
  - RHABDOMYOLYSIS [None]
  - TROPONIN INCREASED [None]
